FAERS Safety Report 22027723 (Version 1)
Quarter: 2023Q1

REPORT INFORMATION
  Report Type: Spontaneous
  Country: JP (occurrence: JP)
  Receive Date: 20230223
  Receipt Date: 20230223
  Transmission Date: 20230418
  Serious: Yes (Death, Life-Threatening, Other)
  Sender: FDA-Public Use
  Company Number: JP-ASTELLAS-2023JP002082

PATIENT
  Age: 59 Year
  Sex: Male

DRUGS (14)
  1. TACROLIMUS [Suspect]
     Active Substance: TACROLIMUS
     Indication: Prophylaxis against graft versus host disease
     Dosage: UNK UNK, UNKNOWN FREQ.
     Route: 065
  2. AZACITIDINE [Concomitant]
     Active Substance: AZACITIDINE
     Indication: Chemotherapy
     Dosage: UNK UNK, UNKNOWN FREQ.
     Route: 065
  3. VENETOCLAX [Concomitant]
     Active Substance: VENETOCLAX
     Indication: Chemotherapy
     Dosage: UNK UNK, UNKNOWN FREQ.
     Route: 065
  4. DAUNORUBICIN HYDROCHLORIDE [Concomitant]
     Active Substance: DAUNORUBICIN HYDROCHLORIDE
     Indication: Chemotherapy
     Dosage: UNK UNK, UNKNOWN FREQ.
     Route: 065
  5. CYTARABINE [Concomitant]
     Active Substance: CYTARABINE
     Indication: Chemotherapy
     Dosage: UNK UNK, UNKNOWN FREQ.
     Route: 065
  6. CYTARABINE [Concomitant]
     Active Substance: CYTARABINE
     Dosage: UNK UNK, UNKNOWN FREQ.
     Route: 065
  7. MITOXANTRONE HYDROCHLORIDE [Concomitant]
     Active Substance: MITOXANTRONE HYDROCHLORIDE
     Indication: Chemotherapy
     Dosage: UNK UNK, UNKNOWN FREQ.
     Route: 065
  8. FLUDARABINE PHOSPHATE [Concomitant]
     Active Substance: FLUDARABINE PHOSPHATE
     Indication: Bone marrow conditioning regimen
     Dosage: 180, UNKNOWN FREQ.
     Route: 065
  9. BUSULFAN [Concomitant]
     Active Substance: BUSULFAN
     Indication: Bone marrow conditioning regimen
     Dosage: 12.8, UNKNOWN FREQ.
     Route: 042
  10. MELPHALAN [Concomitant]
     Active Substance: MELPHALAN
     Indication: Bone marrow conditioning regimen
     Dosage: 80, UNKNOWN FREQ.
     Route: 065
  11. MYCOPHENOLATE MOFETIL [Concomitant]
     Active Substance: MYCOPHENOLATE MOFETIL
     Indication: Prophylaxis against graft versus host disease
     Dosage: UNK UNK, UNKNOWN FREQ.
     Route: 065
  12. DEFIBROTIDE SODIUM [Concomitant]
     Active Substance: DEFIBROTIDE SODIUM
     Indication: Venoocclusive liver disease
     Dosage: UNK UNK, UNKNOWN FREQ.
     Route: 065
  13. DEFIBROTIDE SODIUM [Concomitant]
     Active Substance: DEFIBROTIDE SODIUM
     Indication: Venous occlusion
  14. AMPHOTERICIN B [Concomitant]
     Active Substance: AMPHOTERICIN B
     Indication: Drug therapy
     Dosage: 2.5 MG/KG, UNKNOWN FREQ.
     Route: 065

REACTIONS (3)
  - Arrhythmia [Fatal]
  - Aspergillus infection [Fatal]
  - Pericarditis infective [Fatal]
